FAERS Safety Report 5982264-6 (Version None)
Quarter: 2008Q4

REPORT INFORMATION
  Report Type: 
  Country: None (occurrence: None)
  Receive Date: 20081208
  Receipt Date: 20081205
  Transmission Date: 20090506
  Serious: Yes (Death, Other)
  Sender: FDA-Public Use
  Company Number: B0547156A

PATIENT
  Age: 13 Year
  Sex: Female

DRUGS (3)
  1. MELPHALAN [Suspect]
     Indication: ALLOGENIC BONE MARROW TRANSPLANTATION THERAPY
     Route: 042
  2. RITUXIMAB [Concomitant]
     Indication: ALLOGENIC BONE MARROW TRANSPLANTATION THERAPY
  3. TOTAL BODY IRRADIATION [Concomitant]
     Indication: ALLOGENIC BONE MARROW TRANSPLANTATION THERAPY

REACTIONS (5)
  - AMNESIA [None]
  - CEREBRAL ATROPHY [None]
  - ENCEPHALITIS HERPES [None]
  - HISTIOCYTOSIS HAEMATOPHAGIC [None]
  - HUMAN HERPESVIRUS 6 INFECTION [None]
